FAERS Safety Report 8894507 (Version 1)
Quarter: 2012Q4

REPORT INFORMATION
  Report Type: 
  Country: GB (occurrence: GB)
  Receive Date: 20121108
  Receipt Date: 20121108
  Transmission Date: 20130627
  Serious: Yes (Hospitalization)
  Sender: FDA-Public Use
  Company Number: GB-PERRIGO-12GB009379

PATIENT
  Age: 41 Year
  Sex: Female
  Weight: 60.32 kg

DRUGS (1)
  1. IBUPROFEN [Suspect]
     Indication: PRODUCT USED FOR UNKNOWN INDICATION
     Dosage: 400 mg, single
     Route: 048
     Dates: start: 20121002, end: 20121002

REACTIONS (7)
  - Anaphylactic shock [Recovered/Resolved]
  - Dyspnoea [Recovered/Resolved]
  - Pharyngeal oedema [Recovered/Resolved]
  - Hypoaesthesia oral [Recovered/Resolved]
  - Drooling [Recovered/Resolved]
  - Paraesthesia oral [Recovered/Resolved]
  - Dysphonia [Recovered/Resolved]
